FAERS Safety Report 12837819 (Version 1)
Quarter: 2016Q4

REPORT INFORMATION
  Report Type: Report from Study
  Country: CA (occurrence: CA)
  Receive Date: 20161012
  Receipt Date: 20161012
  Transmission Date: 20170207
  Serious: Yes (Other)
  Sender: FDA-Public Use
  Company Number: CA-ALEXION-A201607606

PATIENT
  Sex: Male

DRUGS (10)
  1. LEXIN                              /00052501/ [Concomitant]
     Active Substance: CARBAMAZEPINE
     Indication: PROPHYLAXIS
     Dosage: 250 MG, BID
     Route: 048
     Dates: start: 201106
  2. ENALAPRIL [Concomitant]
     Active Substance: ENALAPRIL
     Indication: HYPERTENSION
     Dosage: 2.5 MG IN MORNING AND 5MG AT NOGHT
     Route: 048
     Dates: start: 201106
  3. SOLIRIS [Suspect]
     Active Substance: ECULIZUMAB
     Indication: OFF LABEL USE
     Dosage: 900 MG, Q2W
     Route: 042
     Dates: start: 20110802, end: 20130402
  4. AMLODIPINE [Concomitant]
     Active Substance: AMLODIPINE BESYLATE
     Indication: HYPERTENSION
     Dosage: 5 MG, BID
     Route: 048
     Dates: start: 201106
  5. SOLIRIS [Suspect]
     Active Substance: ECULIZUMAB
     Indication: GLOMERULONEPHRITIS MEMBRANOPROLIFERATIVE
     Dosage: 600 MG, QW
     Route: 042
     Dates: start: 20110621, end: 20110726
  6. PREDNISONE. [Concomitant]
     Active Substance: PREDNISONE
     Indication: PROPHYLAXIS
     Dosage: 5 MG, QD
     Route: 048
     Dates: start: 201106
  7. MINIPRESS [Concomitant]
     Active Substance: PRAZOSIN HYDROCHLORIDE
     Indication: PRODUCT USED FOR UNKNOWN INDICATION
     Dosage: UNK
     Route: 065
     Dates: start: 20150415
  8. SOLIRIS [Suspect]
     Active Substance: ECULIZUMAB
     Dosage: 1200 MG, Q2W
     Route: 042
     Dates: start: 20130416
  9. IRBESARTAN. [Concomitant]
     Active Substance: IRBESARTAN
     Indication: HYPERTENSION
     Dosage: 300 MG, QD
     Route: 048
     Dates: start: 201106
  10. DESMOPRESSIN [Concomitant]
     Active Substance: DESMOPRESSIN
     Indication: PRODUCT USED FOR UNKNOWN INDICATION
     Dosage: 0. MG, QD
     Route: 048
     Dates: start: 201106

REACTIONS (4)
  - Diarrhoea [Not Recovered/Not Resolved]
  - Off label use [Unknown]
  - Growth retardation [Not Recovered/Not Resolved]
  - Abdominal pain [Not Recovered/Not Resolved]
